FAERS Safety Report 8508075-5 (Version None)
Quarter: 2012Q3

REPORT INFORMATION
  Report Type: 
  Country: None (occurrence: None)
  Receive Date: 20120713
  Receipt Date: 20120709
  Transmission Date: 20120928
  Serious: Yes (Hospitalization)
  Sender: FDA-Public Use
  Company Number: US-BAYER-2012-060624

PATIENT
  Age: 48 Year
  Sex: Female
  Weight: 80.272 kg

DRUGS (7)
  1. DIOVAN [Concomitant]
  2. IRON [Concomitant]
  3. LOESTRIN FE 1/20 [Concomitant]
     Indication: ORAL CONTRACEPTION
     Dosage: UNK
     Dates: start: 20100930, end: 20101019
  4. LOESTRIN FE 1/20 [Concomitant]
     Dosage: UNK
     Dates: start: 20100801
  5. ASPIRIN [Concomitant]
  6. YAZ [Suspect]
     Indication: DYSMENORRHOEA
     Dosage: UNK UNK, TID
     Dates: start: 20100503, end: 20101019
  7. PREMPRO [Concomitant]

REACTIONS (5)
  - DEEP VEIN THROMBOSIS [None]
  - INJURY [None]
  - PAIN [None]
  - PAIN IN EXTREMITY [None]
  - OEDEMA PERIPHERAL [None]
